FAERS Safety Report 9477850 (Version 1)
Quarter: 2013Q3

REPORT INFORMATION
  Report Type: Spontaneous
  Country: US (occurrence: None)
  Receive Date: 20130826
  Receipt Date: 20130826
  Transmission Date: 20140515
  Serious: No
  Sender: FDA-Public Use
  Company Number: None

PATIENT
  Age: 54 Year
  Sex: Female
  Weight: 86.18 kg

DRUGS (1)
  1. ADDERALL XR 30 MG [Suspect]
     Indication: NARCOLEPSY
     Dosage: 30MG/2 TWICE DAILY TAKEN BY MOUTH
     Route: 048
     Dates: start: 20130807, end: 20130824

REACTIONS (3)
  - Fatigue [None]
  - Drug ineffective [None]
  - Product substitution issue [None]
